FAERS Safety Report 6212101-6 (Version None)
Quarter: 2009Q2

REPORT INFORMATION
  Report Type: 
  Country: None (occurrence: None)
  Receive Date: 20090602
  Receipt Date: 20090521
  Transmission Date: 20091009
  Serious: Yes (Other)
  Sender: FDA-Public Use
  Company Number: US-PFIZER INC-2009217406

PATIENT
  Sex: Female
  Weight: 55.338 kg

DRUGS (3)
  1. CHANTIX [Suspect]
     Indication: SMOKING CESSATION THERAPY
     Dosage: 0.5 MG, 1X/DAY
     Dates: start: 20090517
  2. XANAX [Concomitant]
     Indication: PREMENSTRUAL SYNDROME
     Dosage: UNK
  3. XANAX [Concomitant]
     Indication: ANXIETY

REACTIONS (1)
  - PARANOIA [None]
